FAERS Safety Report 23655106 (Version 1)
Quarter: 2024Q1

REPORT INFORMATION
  Report Type: Spontaneous
  Country: DE (occurrence: FR)
  Receive Date: 20240320
  Receipt Date: 20240320
  Transmission Date: 20240410
  Serious: Yes (Death, Life-Threatening)
  Sender: FDA-Public Use
  Company Number: FR-ABBOTT-07P-056-0421554-00

PATIENT
  Age: 93 Year
  Sex: Female
  Weight: 67 kg

DRUGS (21)
  1. INIPOMP [Suspect]
     Active Substance: PANTOPRAZOLE SODIUM
     Indication: Product used for unknown indication
     Dosage: 40 MILLIGRAM, QD (GASTRO-RESISTANT TABLET)
     Route: 048
     Dates: start: 20070705
  2. TRAMADOL HYDROCHLORIDE [Suspect]
     Active Substance: TRAMADOL HYDROCHLORIDE
     Indication: Spinal column injury
     Dosage: 100 MILLIGRAM, QD
     Route: 048
     Dates: start: 20070628, end: 20070713
  3. TRAMADOL [Suspect]
     Active Substance: TRAMADOL\TRAMADOL HYDROCHLORIDE
     Indication: Spinal column injury
     Dosage: 100 MILLIGRAM, QD
     Route: 048
     Dates: start: 20070628, end: 20070713
  4. KARDEGIC [Suspect]
     Active Substance: ASPIRIN DL-LYSINE
     Indication: Prophylaxis
     Dosage: 75 MILLIGRAM, QD (IN SACHET-DOSE). DOSE REPORTED AS 1 DOSE QD.
     Route: 048
     Dates: start: 20070705
  5. LEVOFLOXACIN [Suspect]
     Active Substance: LEVOFLOXACIN
     Indication: Respiratory tract infection
     Dosage: 250 MILLIGRAM, QD
     Route: 048
     Dates: start: 20070704, end: 20070713
  6. LEVOFLOXACIN [Suspect]
     Active Substance: LEVOFLOXACIN
     Dosage: 1000 MILLIGRAM, QD
     Route: 048
     Dates: start: 20070705, end: 20070713
  7. FUROSEMIDE [Suspect]
     Active Substance: FUROSEMIDE
     Indication: Product used for unknown indication
     Dosage: DOSE INCREASED.
     Route: 048
     Dates: start: 20070629, end: 20070704
  8. FUROSEMIDE [Suspect]
     Active Substance: FUROSEMIDE
     Dosage: DOSE INCREASED.
     Route: 048
     Dates: start: 20070704
  9. CEFTRIAXONE SODIUM [Suspect]
     Active Substance: CEFTRIAXONE SODIUM
     Indication: Respiratory tract infection
     Dosage: 1 GRAM, QD, FORM REPORTED AS INJECTABLE SOLUTION.
     Route: 042
     Dates: start: 20070709
  10. CALCIUM\CHOLECALCIFEROL [Concomitant]
     Active Substance: CALCIUM\CHOLECALCIFEROL
     Indication: Spinal cord compression
     Dosage: DOSE REPORTED AS 2 DOSES PER DAY.
     Route: 048
     Dates: start: 20070628
  11. CALCIUM\CHOLECALCIFEROL [Concomitant]
     Active Substance: CALCIUM\CHOLECALCIFEROL
     Indication: Spinal cord compression
     Route: 065
  12. DAFALGAN [Concomitant]
     Active Substance: ACETAMINOPHEN
     Indication: Pain
     Dosage: 1 MILLIGRAM, Q6H
     Route: 065
     Dates: start: 20070628
  13. CALCIUM CARBONATE\CHOLECALCIFEROL [Concomitant]
     Active Substance: CALCIUM CARBONATE\CHOLECALCIFEROL
     Indication: Spinal compression fracture
     Dosage: 2 DOSAGE FORM, QD
     Route: 048
     Dates: start: 20070628
  14. GINKGO [Concomitant]
     Active Substance: GINKGO
     Indication: Product used for unknown indication
     Dosage: UNK
     Route: 065
  15. CHONDROITIN SULFATE (CHICKEN) [Concomitant]
     Active Substance: CHONDROITIN SULFATE (CHICKEN)
     Indication: Polyarthritis
     Dosage: UNK
     Route: 065
  16. AMOXICILLIN\CLAVULANIC ACID [Concomitant]
     Active Substance: AMOXICILLIN\CLAVULANIC ACID
     Indication: Respiratory tract infection
     Dosage: 1 DOSAGE FORM, QD
     Route: 048
     Dates: start: 20070715, end: 20070716
  17. AMOXICILLIN\CLAVULANIC ACID [Concomitant]
     Active Substance: AMOXICILLIN\CLAVULANIC ACID
     Indication: Respiratory tract infection
     Dosage: 1 DOSAGE FORM, QD
     Route: 065
     Dates: start: 20070630, end: 20070704
  18. Seropram [Concomitant]
     Indication: Product used for unknown indication
     Dosage: 20MILLIGRAMQD
     Route: 048
     Dates: start: 20070703
  19. PREDNISOLONE [Concomitant]
     Active Substance: PREDNISOLONE
     Indication: Product used for unknown indication
     Dosage: 60 MILLIGRAM, QD
     Route: 048
     Dates: start: 20070713
  20. TERBUTALINE [Concomitant]
     Active Substance: TERBUTALINE
     Indication: Respiratory tract infection
     Dosage: UNK
     Route: 065
     Dates: start: 20070630
  21. IPRATROPIUM [Concomitant]
     Active Substance: IPRATROPIUM
     Indication: Respiratory tract infection
     Dosage: UNK
     Route: 065
     Dates: start: 20070630

REACTIONS (1)
  - Acute kidney injury [Fatal]

NARRATIVE: CASE EVENT DATE: 20070711
